FAERS Safety Report 11233117 (Version 1)
Quarter: 2015Q3

REPORT INFORMATION
  Report Type: Spontaneous
  Country: GB (occurrence: GB)
  Receive Date: 20150701
  Receipt Date: 20150701
  Transmission Date: 20151125
  Serious: Yes (Other)
  Sender: FDA-Public Use
  Company Number: GB-GLAXOSMITHKLINE-GB2015054666

PATIENT
  Age: 76 Year
  Sex: Male
  Weight: 78 kg

DRUGS (1)
  1. RANITIDINE [Suspect]
     Active Substance: RANITIDINE\RANITIDINE HYDROCHLORIDE
     Indication: PRODUCT USED FOR UNKNOWN INDICATION
     Dates: start: 20150413

REACTIONS (1)
  - Vomiting [Unknown]

NARRATIVE: CASE EVENT DATE: 20150413
